FAERS Safety Report 7558530-X (Version None)
Quarter: 2011Q2

REPORT INFORMATION
  Report Type: 
  Country: None (occurrence: None)
  Receive Date: 20110620
  Receipt Date: 20110610
  Transmission Date: 20111010
  Serious: Yes (Death, Hospitalization)
  Sender: FDA-Public Use
  Company Number: IT-ELI_LILLY_AND_COMPANY-IT201106004004

PATIENT

DRUGS (3)
  1. ALIMTA [Suspect]
     Indication: NON-SMALL CELL LUNG CANCER
     Dosage: 900 UNK, UNKNOWN
     Route: 042
     Dates: start: 20110216
  2. FOLIC ACID [Concomitant]
     Dosage: UNK
     Route: 048
     Dates: start: 20110202, end: 20110307
  3. DOBETIN [Concomitant]
     Dosage: 1000 UNK, EVERY 6WEEKS
     Route: 030
     Dates: start: 20110202

REACTIONS (3)
  - DIARRHOEA [None]
  - NEUTROPENIA [None]
  - BLOOD BILIRUBIN INCREASED [None]
